FAERS Safety Report 23409300 (Version 1)
Quarter: 2024Q1

REPORT INFORMATION
  Report Type: Spontaneous
  Country: CN (occurrence: None)
  Receive Date: 20240117
  Receipt Date: 20240117
  Transmission Date: 20240410
  Serious: Yes (Hospitalization, Other)
  Sender: FDA-Public Use
  Company Number: 2024A009246

PATIENT
  Age: 52 Year
  Sex: Female

DRUGS (1)
  1. OSIMERTINIB MESYLATE [Suspect]
     Active Substance: OSIMERTINIB MESYLATE
     Indication: Lung neoplasm malignant
     Route: 048
     Dates: start: 20220727, end: 20231123

REACTIONS (5)
  - White blood cell count decreased [Recovering/Resolving]
  - Gastrointestinal disorder [Recovering/Resolving]
  - Epigastric discomfort [Unknown]
  - Metastases to central nervous system [Unknown]
  - Platelet count decreased [Unknown]

NARRATIVE: CASE EVENT DATE: 20231123
